FAERS Safety Report 5822931-8 (Version None)
Quarter: 2008Q3

REPORT INFORMATION
  Report Type: 
  Country: None (occurrence: None)
  Receive Date: 20080724
  Receipt Date: 20080724
  Transmission Date: 20090109
  Serious: Yes (Other)
  Sender: FDA-Public Use
  Company Number: None

PATIENT
  Sex: Female
  Weight: 92.0802 kg

DRUGS (1)
  1. FENTANYL-100 [Suspect]
     Indication: PAIN
     Dosage: PATCH 3 DAYS 060

REACTIONS (15)
  - ALOPECIA [None]
  - BLISTER [None]
  - BLISTER INFECTED [None]
  - FEAR [None]
  - ILL-DEFINED DISORDER [None]
  - INFECTION [None]
  - INSOMNIA [None]
  - RASH [None]
  - SCAB [None]
  - SKIN DISORDER [None]
  - SKIN LESION [None]
  - STICKY SKIN [None]
  - URTICARIA [None]
  - VOMITING [None]
  - WOUND SECRETION [None]
